FAERS Safety Report 20292333 (Version 1)
Quarter: 2022Q1

REPORT INFORMATION
  Report Type: Spontaneous
  Country: US (occurrence: US)
  Receive Date: 20220104
  Receipt Date: 20220104
  Transmission Date: 20220423
  Serious: Yes (Other)
  Sender: FDA-Public Use
  Company Number: US-PFIZER INC-2021872040

PATIENT
  Age: 77 Year
  Sex: Male

DRUGS (3)
  1. VYNDAMAX [Suspect]
     Active Substance: TAFAMIDIS
     Indication: Cardiac failure
     Dosage: 61 MG
  2. VYNDAMAX [Suspect]
     Active Substance: TAFAMIDIS
     Indication: Cardiac amyloidosis
  3. VYNDAMAX [Suspect]
     Active Substance: TAFAMIDIS
     Indication: Restrictive cardiomyopathy

REACTIONS (17)
  - Cardiac failure congestive [Unknown]
  - Deafness [Unknown]
  - Hyperaldosteronism [Unknown]
  - Atrial fibrillation [Unknown]
  - Prostate cancer [Unknown]
  - Rhinitis allergic [Unknown]
  - Oedema peripheral [Unknown]
  - Coronary artery disease [Unknown]
  - Carpal tunnel syndrome [Unknown]
  - Chest discomfort [Unknown]
  - Chest pain [Unknown]
  - Cough [Unknown]
  - Dyspnoea [Unknown]
  - Cerumen impaction [Unknown]
  - Hypertension [Unknown]
  - Meralgia paraesthetica [Unknown]
  - Pollakiuria [Unknown]
